FAERS Safety Report 8179091-0 (Version None)
Quarter: 2012Q1

REPORT INFORMATION
  Report Type: 
  Country: None (occurrence: None)
  Receive Date: 20120126
  Receipt Date: 20111014
  Transmission Date: 20120608
  Serious: No
  Sender: FDA-Public Use
  Company Number: PHEH2011US04619

PATIENT
  Sex: Male
  Weight: 82.1 kg

DRUGS (14)
  1. SIMVASTATIN [Concomitant]
  2. ASPIRIN [Concomitant]
  3. CIALIS [Concomitant]
  4. COZAAR [Concomitant]
  5. MULTIVITAMIN [Concomitant]
  6. FISH OIL [Concomitant]
  7. ACTOS [Concomitant]
  8. AFINITOR [Suspect]
     Dosage: 10 MG EVERY DAY, ORAL : 05 MG EVERY DAY, ORAL
     Route: 048
     Dates: start: 20110901
  9. VITAMIN D3 (COLCCALCIFEROL) [Concomitant]
  10. IMMUNE (NO INGREDIENTS/SUBSTANCES) [Concomitant]
  11. OMEPRAZOLE [Concomitant]
  12. GLYBURIDE [Concomitant]
  13. GLUCOSAMINE /CHONDROITIN /MSM (CHONDROITIN, GLUCOSAMINE, METHYLSULFONY [Concomitant]
  14. CHLORELLA (CHLORELLA VULGARIS) [Concomitant]

REACTIONS (5)
  - STOMATITIS [None]
  - DYSGEUSIA [None]
  - COUGH [None]
  - LABORATORY TEST ABNORMAL [None]
  - FATIGUE [None]
